FAERS Safety Report 9058362 (Version 1)
Quarter: 2013Q1

REPORT INFORMATION
  Report Type: Spontaneous
  Country: US (occurrence: None)
  Receive Date: 20130205
  Receipt Date: 20130205
  Transmission Date: 20140127
  Serious: Yes (Other)
  Sender: FDA-Public Use
  Company Number: None

PATIENT
  Age: 57 Year
  Sex: Female
  Weight: 56.25 kg

DRUGS (1)
  1. LYRICA [Suspect]
     Indication: FIBROMYALGIA
     Route: 048
     Dates: start: 20120301, end: 20121126

REACTIONS (28)
  - Vision blurred [None]
  - Muscular weakness [None]
  - Anxiety [None]
  - Sleep disorder [None]
  - Hypoaesthesia [None]
  - Hypoaesthesia [None]
  - Rash macular [None]
  - Headache [None]
  - Dizziness [None]
  - Arthralgia [None]
  - Myalgia [None]
  - Muscle spasms [None]
  - Hot flush [None]
  - Nausea [None]
  - Disturbance in attention [None]
  - Aphagia [None]
  - No therapeutic response [None]
  - Influenza [None]
  - Activities of daily living impaired [None]
  - Weight decreased [None]
  - Drug withdrawal syndrome [None]
  - Cerebral small vessel ischaemic disease [None]
  - Feeling abnormal [None]
  - Urinary retention [None]
  - Pharyngeal oedema [None]
  - Lip swelling [None]
  - Swollen tongue [None]
  - Middle insomnia [None]
